FAERS Safety Report 19039509 (Version 1)
Quarter: 2021Q1

REPORT INFORMATION
  Report Type: Spontaneous
  Country: CA (occurrence: CA)
  Receive Date: 20210322
  Receipt Date: 20210322
  Transmission Date: 20210420
  Serious: Yes (Other)
  Sender: FDA-Public Use
  Company Number: CA-ORION CORPORATION ORION PHARMA-21_00013695

PATIENT
  Age: 70 Year
  Sex: Male

DRUGS (2)
  1. METHOTREXATE (TRADE NAME UNKNOWN) [Suspect]
     Active Substance: METHOTREXATE
     Indication: PSORIATIC ARTHROPATHY
     Dosage: (Q UNK)
     Route: 065
     Dates: start: 2016
  2. CORTISONE [Concomitant]
     Active Substance: CORTISONE
     Route: 065

REACTIONS (5)
  - Limb discomfort [Unknown]
  - Peripheral swelling [Unknown]
  - Peripheral artery occlusion [Unknown]
  - Psoriatic arthropathy [Unknown]
  - Pain in extremity [Unknown]
